FAERS Safety Report 7728412-9 (Version None)
Quarter: 2011Q3

REPORT INFORMATION
  Report Type: 
  Country: None (occurrence: None)
  Receive Date: 20110905
  Receipt Date: 20110831
  Transmission Date: 20111222
  Serious: Yes (Other)
  Sender: FDA-Public Use
  Company Number: PHEH2011US03214

PATIENT
  Age: 57 Year
  Sex: Female

DRUGS (7)
  1. ESTROGEN-METHYLTESTOSTERONE [Concomitant]
     Dosage: UNK UKN, UNK
  2. OMEPRAZOLE [Concomitant]
     Dosage: UNK UKN, UNK
  3. HYDROCODONE [Concomitant]
     Dosage: UNK UKN, UNK
  4. PHENERGAN HCL [Concomitant]
     Dosage: UNK UKN, UNK
  5. BENTYL [Concomitant]
     Dosage: UNK UKN, UNK
  6. GILENYA [Suspect]
     Indication: MULTIPLE SCLEROSIS
     Dosage: 0.5 MG, QD
     Route: 048
     Dates: start: 20110718
  7. SYNTHROID [Concomitant]
     Dosage: UNK UKN, UNK

REACTIONS (3)
  - CENTRAL NERVOUS SYSTEM LESION [None]
  - NERVOUS SYSTEM DISORDER [None]
  - MUSCLE SPASMS [None]
